FAERS Safety Report 8747314 (Version 2)
Quarter: 2013Q1

REPORT INFORMATION
  Report Type: Spontaneous
  Country: BR (occurrence: BR)
  Receive Date: 20120827
  Receipt Date: 20130208
  Transmission Date: 20140127
  Serious: Yes (Hospitalization, Other)
  Sender: FDA-Public Use
  Company Number: PHHY2012BR073213

PATIENT
  Sex: Male

DRUGS (1)
  1. DIOVAN TRIPLE [Suspect]
     Indication: HYPERTENSION
     Dosage: 2 DF (160/25/10MG), PER DAY
     Route: 048

REACTIONS (3)
  - Rib fracture [Recovering/Resolving]
  - Joint dislocation [Recovering/Resolving]
  - Accident [Recovering/Resolving]
